FAERS Safety Report 9594781 (Version 1)
Quarter: 2013Q4

REPORT INFORMATION
  Report Type: Spontaneous
  Country: US (occurrence: None)
  Receive Date: 20131001
  Receipt Date: 20131001
  Transmission Date: 20140711
  Serious: Yes (Other)
  Sender: FDA-Public Use
  Company Number: 2013BAX020182

PATIENT
  Age: 52 Year
  Sex: Female
  Weight: 68.18 kg

DRUGS (4)
  1. GAMMAGARD S/D [Suspect]
     Indication: IMMUNODEFICIENCY COMMON VARIABLE
     Dosage: 20 GM, UNKNOWN
     Dates: start: 2011
  2. MULTIVITAMINS (ERGOCALCIFEROL, ASCORBIC ACID, FOLIC ACID, THIAMINE HYDROCHLORIDE, RETINOL, RIBOFLAVIN, NICOTINAMIDE, PANTHENOL)? [Concomitant]
  3. SOLUMEDROL (METHYLPREDNISOLONE SODIUM SUCCINATE) [Concomitant]
  4. MOTRIN (IBUPROFEN) [Concomitant]

REACTIONS (1)
  - Meningitis aseptic [None]
